FAERS Safety Report 5725210-2 (Version None)
Quarter: 2008Q2

REPORT INFORMATION
  Report Type: 
  Country: None (occurrence: None)
  Receive Date: 20080501
  Receipt Date: 20080428
  Transmission Date: 20081010
  Serious: Yes (Death, Hospitalization)
  Sender: FDA-Public Use
  Company Number: B0517742A

PATIENT
  Age: 85 Year
  Sex: Female

DRUGS (6)
  1. ARIXTRA [Suspect]
     Indication: PHLEBITIS
     Route: 058
     Dates: start: 20070925, end: 20071007
  2. DEROXAT [Concomitant]
     Indication: DRUG USE FOR UNKNOWN INDICATION
     Route: 048
     Dates: end: 20071007
  3. DIFFU K [Concomitant]
     Indication: DRUG USE FOR UNKNOWN INDICATION
     Route: 048
     Dates: end: 20071007
  4. BURINEX [Concomitant]
     Indication: DRUG USE FOR UNKNOWN INDICATION
     Route: 048
     Dates: end: 20071007
  5. ALDACTONE [Concomitant]
     Indication: DRUG USE FOR UNKNOWN INDICATION
     Route: 048
     Dates: end: 20071007
  6. ATHYMIL [Concomitant]
     Indication: DRUG USE FOR UNKNOWN INDICATION
     Route: 048
     Dates: end: 20071007

REACTIONS (15)
  - ANAEMIA [None]
  - ASTHENIA [None]
  - BREAST HAEMATOMA [None]
  - CIRCULATORY COLLAPSE [None]
  - COAGULOPATHY [None]
  - GENERAL PHYSICAL HEALTH DETERIORATION [None]
  - HAEMATOMA [None]
  - HYPERKALAEMIA [None]
  - INTRA-ABDOMINAL HAEMATOMA [None]
  - METABOLIC ACIDOSIS [None]
  - OVERDOSE [None]
  - RENAL FAILURE ACUTE [None]
  - RESPIRATORY DISTRESS [None]
  - SHOCK [None]
  - SHOCK HAEMORRHAGIC [None]
